FAERS Safety Report 6883394-7 (Version None)
Quarter: 2010Q3

REPORT INFORMATION
  Report Type: 
  Country: None (occurrence: None)
  Receive Date: 20100727
  Receipt Date: 20071203
  Transmission Date: 20110219
  Serious: Yes (Hospitalization)
  Sender: FDA-Public Use
  Company Number: US-PFIZER INC-2006114277

PATIENT
  Sex: Female
  Weight: 108.9 kg

DRUGS (6)
  1. CELEBREX [Suspect]
     Indication: OSTEOARTHRITIS
     Dosage: 100MG AND 200MG
     Route: 048
     Dates: start: 19990701
  2. VIOXX [Suspect]
     Indication: OSTEOARTHRITIS
     Route: 048
     Dates: start: 19990708
  3. MICRO-K [Concomitant]
     Indication: HYPOKALAEMIA
  4. PREDNISONE [Concomitant]
     Dates: start: 19990630, end: 20010531
  5. SULAR [Concomitant]
     Indication: CHEST PAIN
     Dates: start: 19990913, end: 20030501
  6. MAXZIDE [Concomitant]
     Indication: OEDEMA PERIPHERAL
     Dates: start: 19980303, end: 20060701

REACTIONS (2)
  - CEREBROVASCULAR ACCIDENT [None]
  - MYOCARDIAL INFARCTION [None]
